FAERS Safety Report 10622347 (Version 1)
Quarter: 2014Q4

REPORT INFORMATION
  Report Type: Spontaneous
  Country: US (occurrence: US)
  Receive Date: 20141203
  Receipt Date: 20141203
  Transmission Date: 20150529
  Serious: No
  Sender: FDA-Public Use
  Company Number: US-TARO-2014TAR00360

PATIENT
  Age: 75 Year
  Sex: Female
  Weight: 72.56 kg

DRUGS (5)
  1. FLOVENT [Concomitant]
     Active Substance: FLUTICASONE PROPIONATE
  2. UNSPECIFIED CHOLESTEROL MEDICATION [Concomitant]
  3. CARBAMAZEPINE TABLETS CHEWABLE USP 100MG [Suspect]
     Active Substance: CARBAMAZEPINE
     Indication: TRIGEMINAL NEURALGIA
     Dosage: 50 MG, 3X/DAY
     Route: 048
     Dates: start: 20140806, end: 20140810
  4. UNSPECIFIED BLOOD PRESSURE PILL [Concomitant]
  5. SINGULAIR [Concomitant]
     Active Substance: MONTELUKAST SODIUM

REACTIONS (5)
  - Abdominal pain upper [Recovered/Resolved]
  - Nausea [Recovered/Resolved]
  - Drug ineffective [Not Recovered/Not Resolved]
  - Headache [Recovered/Resolved]
  - Retching [Recovered/Resolved]

NARRATIVE: CASE EVENT DATE: 20140807
